FAERS Safety Report 5255197-0 (Version None)
Quarter: 2007Q1

REPORT INFORMATION
  Report Type: 
  Country: None (occurrence: None)
  Receive Date: 20070227
  Receipt Date: 20070212
  Transmission Date: 20070707
  Serious: Yes (Other)
  Sender: FDA-Public Use
  Company Number: 012821

PATIENT
  Age: 39 Year
  Sex: Male

DRUGS (3)
  1. PRIALT [Suspect]
     Indication: NEURALGIA
     Dosage: SEE IMAGE
     Route: 037
     Dates: start: 20061001
  2. MORPHINE [Concomitant]
  3. LYRICA [Concomitant]

REACTIONS (11)
  - APPENDICITIS PERFORATED [None]
  - HALLUCINATION, AUDITORY [None]
  - HELMINTHIC INFECTION [None]
  - INADEQUATE ANALGESIA [None]
  - LOGORRHOEA [None]
  - OEDEMA PERIPHERAL [None]
  - PARAESTHESIA ORAL [None]
  - PRURITUS GENERALISED [None]
  - SENSORY DISTURBANCE [None]
  - SEPSIS [None]
  - SOMATIC DELUSION [None]
